FAERS Safety Report 7319807-6 (Version None)
Quarter: 2011Q1

REPORT INFORMATION
  Report Type: 
  Country: None (occurrence: None)
  Receive Date: 20110228
  Receipt Date: 20101001
  Transmission Date: 20110831
  Serious: No
  Sender: FDA-Public Use
  Company Number: A0884489A

PATIENT
  Sex: Male

DRUGS (2)
  1. WELLBUTRIN [Concomitant]
  2. LAMICTAL [Suspect]
     Indication: BIPOLAR DISORDER
     Dosage: 10MG PER DAY
     Route: 048
     Dates: start: 20100501, end: 20100801

REACTIONS (3)
  - ILL-DEFINED DISORDER [None]
  - DIZZINESS [None]
  - NAUSEA [None]
